FAERS Safety Report 10950584 (Version 3)
Quarter: 2015Q2

REPORT INFORMATION
  Report Type: Spontaneous
  Country: JP (occurrence: JP)
  Receive Date: 20150324
  Receipt Date: 20150413
  Transmission Date: 20150821
  Serious: No
  Sender: FDA-Public Use
  Company Number: JP-PFIZER INC-2015084205

PATIENT
  Age: 7 Decade
  Sex: Male

DRUGS (1)
  1. SUTENT [Suspect]
     Active Substance: SUNITINIB MALATE
     Indication: RENAL CELL CARCINOMA
     Dosage: UNK
     Route: 048
     Dates: start: 20120412, end: 20130118

REACTIONS (8)
  - Dyspnoea [Recovering/Resolving]
  - Fatigue [Recovering/Resolving]
  - Hyperlipidaemia [Recovering/Resolving]
  - Platelet count decreased [Recovered/Resolved]
  - Renal cell carcinoma [Unknown]
  - Blood thyroid stimulating hormone decreased [Recovering/Resolving]
  - Disease progression [Unknown]
  - Dysgeusia [Recovering/Resolving]
